FAERS Safety Report 17157067 (Version 1)
Quarter: 2019Q4

REPORT INFORMATION
  Report Type: Spontaneous
  Country: US (occurrence: US)
  Receive Date: 20191120
  Receipt Date: 20191120
  Transmission Date: 20200122
  Serious: Yes (Other)
  Sender: FDA-Public Use
  Company Number: None

PATIENT
  Age: 90 Year
  Sex: Female
  Weight: 45.81 kg

DRUGS (10)
  1. RED YEAST RICE [Concomitant]
     Active Substance: DIETARY SUPPLEMENT
  2. DOXYCYCLINE HYCLATE 100MG TAB GENERIC: DOXYCYCLIE-ORAL [Suspect]
     Active Substance: DOXYCYCLINE HYCLATE
     Indication: CELLULITIS
     Dosage: ?          QUANTITY:100 MG MILLIGRAM(S);?
     Route: 048
     Dates: start: 20190625, end: 20190625
  3. LEVOTHYROXINE. [Concomitant]
     Active Substance: LEVOTHYROXINE
  4. CALCIUM [Concomitant]
     Active Substance: CALCIUM
  5. IRON [Concomitant]
     Active Substance: IRON
  6. AREDS [Concomitant]
     Active Substance: MINERALS\VITAMINS
  7. VALSARTIN [Concomitant]
     Active Substance: VALSARTAN
  8. OMEGA 3 W/D [Concomitant]
  9. ASPIRIN. [Concomitant]
     Active Substance: ASPIRIN
  10. METRONIDAZOLE LOTION [Concomitant]

REACTIONS (2)
  - Throat irritation [None]
  - Foreign body in respiratory tract [None]

NARRATIVE: CASE EVENT DATE: 20190625
